FAERS Safety Report 7132539-2 (Version None)
Quarter: 2010Q4

REPORT INFORMATION
  Report Type: 
  Country: None (occurrence: None)
  Receive Date: 20101202
  Receipt Date: 20101126
  Transmission Date: 20110411
  Serious: Yes (Other)
  Sender: FDA-Public Use
  Company Number: FI-ROCHE-744920

PATIENT
  Age: 35 Year
  Sex: Male

DRUGS (2)
  1. ROACTEMRA [Suspect]
     Route: 065
     Dates: end: 20090101
  2. PREDNISOLONE [Concomitant]

REACTIONS (3)
  - INTESTINAL FISTULA [None]
  - SKIN ULCER [None]
  - WHITE BLOOD CELL COUNT INCREASED [None]
